FAERS Safety Report 15666427 (Version 1)
Quarter: 2018Q4

REPORT INFORMATION
  Report Type: Spontaneous
  Country: US (occurrence: US)
  Receive Date: 20181116
  Receipt Date: 20181116
  Transmission Date: 20190205
  Serious: Yes (Hospitalization)
  Sender: FDA-Public Use
  Company Number: None

PATIENT
  Age: 35 Year
  Sex: Male
  Weight: 91.7 kg

DRUGS (8)
  1. MERCAPTOPURINE. [Suspect]
     Active Substance: MERCAPTOPURINE
     Dates: end: 20180816
  2. CYTARABINE. [Suspect]
     Active Substance: CYTARABINE
     Dates: end: 20180817
  3. ONCASPAR [Suspect]
     Active Substance: PEGASPARGASE
     Dates: end: 20180717
  4. METHOTREXATE. [Suspect]
     Active Substance: METHOTREXATE
     Dates: end: 20180716
  5. DAUNORUBICIN [Suspect]
     Active Substance: DAUNORUBICIN
     Dates: end: 20180614
  6. DEXAMETHASONE. [Suspect]
     Active Substance: DEXAMETHASONE
     Dates: end: 20180613
  7. VINCRISTINE SULFATE. [Suspect]
     Active Substance: VINCRISTINE SULFATE
     Dates: end: 20180614
  8. CYCLOPHOSPHAMIDE. [Suspect]
     Active Substance: CYCLOPHOSPHAMIDE
     Dates: end: 20180710

REACTIONS (16)
  - Bone marrow failure [None]
  - Alcohol use [None]
  - Fatigue [None]
  - Nausea [None]
  - Drug dependence [None]
  - Marrow hyperplasia [None]
  - Substance abuse [None]
  - Neutropenia [None]
  - Dizziness postural [None]
  - Thrombocytopenia [None]
  - Anaemia [None]
  - Anxiety [None]
  - Pancytopenia [None]
  - Folate deficiency [None]
  - Feeling jittery [None]
  - Alcohol withdrawal syndrome [None]

NARRATIVE: CASE EVENT DATE: 20181114
